FAERS Safety Report 5483885-X (Version None)
Quarter: 2007Q4

REPORT INFORMATION
  Report Type: 
  Country: None (occurrence: None)
  Receive Date: 20071012
  Receipt Date: 20071010
  Transmission Date: 20080405
  Serious: Yes (Hospitalization)
  Sender: FDA-Public Use
  Company Number: US-ASTRAZENECA-2007UW23605

PATIENT
  Age: 54 Year
  Sex: Male

DRUGS (11)
  1. CRESTOR [Suspect]
  2. PLAVIX [Concomitant]
  3. ASPIRIN [Concomitant]
  4. COREG [Concomitant]
  5. ANTARRA [Concomitant]
  6. LASIX [Concomitant]
  7. ATACAND [Concomitant]
  8. INSPIRA [Concomitant]
  9. NIASPAN [Concomitant]
  10. OMACOR [Concomitant]
  11. LOVAZA [Concomitant]

REACTIONS (3)
  - BLOOD CREATINE PHOSPHOKINASE INCREASED [None]
  - MYALGIA [None]
  - PYREXIA [None]
